FAERS Safety Report 11024726 (Version 1)
Quarter: 2015Q2

REPORT INFORMATION
  Report Type: Spontaneous
  Country: US (occurrence: None)
  Receive Date: 20150413
  Receipt Date: 20150413
  Transmission Date: 20150821
  Serious: No
  Sender: FDA-Public Use
  Company Number: None

PATIENT
  Age: 60 Year
  Sex: Female
  Weight: 97.98 kg

DRUGS (12)
  1. INSULIN ASPART [Concomitant]
     Active Substance: INSULIN ASPART
  2. INSULIN, DETEMIR [Concomitant]
  3. MILNACIPRAN HCL [Concomitant]
  4. INVOKANA [Suspect]
     Active Substance: CANAGLIFLOZIN
     Indication: TYPE 2 DIABETES MELLITUS
     Route: 048
     Dates: start: 20140419, end: 20140626
  5. CELECOXIB. [Concomitant]
     Active Substance: CELECOXIB
  6. CYCLOBENZAPRINE [Concomitant]
     Active Substance: CYCLOBENZAPRINE
  7. DOCUSATE [Concomitant]
     Active Substance: DOCUSATE
  8. LOSARTAN POTASSIUM. [Concomitant]
     Active Substance: LOSARTAN POTASSIUM
  9. METFORMIN HCL [Concomitant]
     Active Substance: METFORMIN HYDROCHLORIDE
  10. SITAGLIPTIN PHOSPHATE [Concomitant]
     Active Substance: SITAGLIPTIN PHOSPHATE
  11. CANAGLIFLOZIN [Concomitant]
     Active Substance: CANAGLIFLOZIN
  12. VITAMIN B-12 CYANOCOBALAMIN [Concomitant]

REACTIONS (1)
  - Fungal infection [None]

NARRATIVE: CASE EVENT DATE: 20140626
